FAERS Safety Report 17156089 (Version 1)
Quarter: 2019Q4

REPORT INFORMATION
  Report Type: Spontaneous
  Country: CN (occurrence: CN)
  Receive Date: 20191216
  Receipt Date: 20191216
  Transmission Date: 20200122
  Serious: Yes (Other)
  Sender: FDA-Public Use
  Company Number: CN-ROCHE-2497995

PATIENT
  Age: 60 Year
  Sex: Male
  Weight: 82 kg

DRUGS (1)
  1. ACTILYSE [Suspect]
     Active Substance: ALTEPLASE
     Indication: CEREBRAL INFARCTION
     Dosage: 50MG + WATER FOR INJECTION 50MG , GIVEN SLOW INTRAVENOUS BOLUS OF 5MG, FOLLOWED BY MICRO-PUMP OF 45
     Route: 040
     Dates: start: 20151116

REACTIONS (4)
  - Haemorrhage intracranial [Unknown]
  - Basal ganglia haematoma [Unknown]
  - Headache [Unknown]
  - Dysphoria [Unknown]

NARRATIVE: CASE EVENT DATE: 20151116
